FAERS Safety Report 17721380 (Version 1)
Quarter: 2020Q2

REPORT INFORMATION
  Report Type: Report from Study
  Country: IT (occurrence: IT)
  Receive Date: 20200429
  Receipt Date: 20200429
  Transmission Date: 20200714
  Serious: Yes (Hospitalization)
  Sender: FDA-Public Use
  Company Number: IT-TEVA-2020-IT-1227139

PATIENT
  Age: 19 Year
  Sex: Male

DRUGS (1)
  1. RISPERIDONE. [Suspect]
     Active Substance: RISPERIDONE
     Indication: MENTAL DISORDER
     Dosage: 5 ML
     Route: 048
     Dates: start: 20200401, end: 20200401

REACTIONS (5)
  - Medication error [Unknown]
  - Dystonia [Unknown]
  - Staring [Unknown]
  - Overdose [Unknown]
  - Muscle rigidity [Unknown]

NARRATIVE: CASE EVENT DATE: 20200402
